FAERS Safety Report 15569359 (Version 1)
Quarter: 2018Q4

REPORT INFORMATION
  Report Type: Spontaneous
  Country: US (occurrence: US)
  Receive Date: 20181030
  Receipt Date: 20181030
  Transmission Date: 20190205
  Serious: Yes (Death)
  Sender: FDA-Public Use
  Company Number: None

PATIENT
  Age: 63 Year
  Sex: Female

DRUGS (16)
  1. GABAPENTIN. [Concomitant]
     Active Substance: GABAPENTIN
  2. CARVEDILOL. [Concomitant]
     Active Substance: CARVEDILOL
  3. PROCRIT [Concomitant]
     Active Substance: ERYTHROPOIETIN
  4. RAYALDEE [Concomitant]
     Active Substance: CALCIFEDIOL
  5. PRAVASTATIN. [Concomitant]
     Active Substance: PRAVASTATIN
  6. BUMETANIDE. [Concomitant]
     Active Substance: BUMETANIDE
  7. OXYCODONE [Concomitant]
     Active Substance: OXYCODONE
  8. NOVOLOG [Concomitant]
     Active Substance: INSULIN ASPART
  9. TACROLIMUS. [Suspect]
     Active Substance: TACROLIMUS
     Indication: ESSENTIAL HYPERTENSION
     Route: 048
     Dates: start: 20180327
  10. MYCOPHENOLIC [Concomitant]
     Active Substance: MYCOPHENOLIC ACID
  11. SODIUM BICARBONATE. [Concomitant]
     Active Substance: SODIUM BICARBONATE
  12. SENSIPAR [Concomitant]
     Active Substance: CINACALCET HYDROCHLORIDE
  13. COLONIDINE [Concomitant]
  14. TACROLIMUS. [Concomitant]
     Active Substance: TACROLIMUS
  15. PREDNISONE. [Concomitant]
     Active Substance: PREDNISONE
  16. AMLODIPINE [Concomitant]
     Active Substance: AMLODIPINE BESYLATE

REACTIONS (1)
  - Death [None]

NARRATIVE: CASE EVENT DATE: 20181027
